FAERS Safety Report 9447367 (Version 1)
Quarter: 2013Q3

REPORT INFORMATION
  Report Type: Report from Study
  Country: JP (occurrence: JP)
  Receive Date: 20130808
  Receipt Date: 20130808
  Transmission Date: 20140515
  Serious: Yes (Hospitalization)
  Sender: FDA-Public Use
  Company Number: JP-ROCHE-1168728

PATIENT
  Age: 32 Year
  Sex: Female
  Weight: 48 kg

DRUGS (13)
  1. TOCILIZUMAB [Suspect]
     Indication: RHEUMATOID ARTHRITIS
     Dosage: 300-520MG
     Route: 041
     Dates: start: 20080611, end: 20121114
  2. TOCILIZUMAB [Suspect]
     Indication: RHEUMATOID ARTHRITIS
     Dosage: DOSAGE IS UNCERTAIN.
     Route: 041
     Dates: start: 20130110, end: 20130531
  3. PREDNISOLONE [Concomitant]
     Indication: RHEUMATOID ARTHRITIS
     Route: 048
     Dates: start: 20070604, end: 20080903
  4. PREDNISOLONE [Concomitant]
     Indication: RHEUMATOID ARTHRITIS
     Route: 048
     Dates: start: 20080904
  5. PREDONINE [Concomitant]
     Indication: PROPHYLAXIS
     Route: 042
     Dates: start: 20080611, end: 20080611
  6. PREDONINE [Concomitant]
     Indication: PROPHYLAXIS
     Route: 042
     Dates: start: 20080709, end: 20080709
  7. PREDONINE [Concomitant]
     Indication: PROPHYLAXIS
     Route: 042
     Dates: start: 20080806, end: 20080806
  8. PREDONINE [Concomitant]
     Indication: PROPHYLAXIS
     Route: 042
     Dates: start: 20080903, end: 20080903
  9. PREDONINE [Concomitant]
     Indication: PROPHYLAXIS
     Route: 042
     Dates: start: 20081001, end: 20081001
  10. PREDONINE [Concomitant]
     Indication: PROPHYLAXIS
     Route: 042
     Dates: start: 20081029, end: 20081029
  11. PREDONINE [Concomitant]
     Indication: PROPHYLAXIS
     Route: 042
     Dates: start: 20081126, end: 20081126
  12. LOXONIN [Concomitant]
     Indication: RHEUMATOID ARTHRITIS
     Route: 048
  13. PARIET [Concomitant]
     Indication: PROPHYLAXIS
     Route: 048

REACTIONS (4)
  - Placental insufficiency [Recovered/Resolved]
  - Foetal growth restriction [Recovered/Resolved]
  - Premature labour [Unknown]
  - Exposure during pregnancy [Unknown]
